FAERS Safety Report 10978245 (Version 1)
Quarter: 2015Q2

REPORT INFORMATION
  Report Type: Spontaneous
  Country: US (occurrence: None)
  Receive Date: 20150401
  Receipt Date: 20150401
  Transmission Date: 20150821
  Serious: Yes (Other)
  Sender: FDA-Public Use
  Company Number: None

PATIENT
  Age: 61 Year
  Sex: Female
  Weight: 72.7 kg

DRUGS (20)
  1. ATENOLOL. [Concomitant]
     Active Substance: ATENOLOL
  2. COLCHICINE. [Concomitant]
     Active Substance: COLCHICINE
  3. ZETIA [Concomitant]
     Active Substance: EZETIMIBE
  4. PROGRAF [Concomitant]
     Active Substance: TACROLIMUS\TACROLIMUS ANHYDROUS
  5. VITAMIN B12 [Concomitant]
     Active Substance: CYANOCOBALAMIN
  6. NASONEX [Concomitant]
     Active Substance: MOMETASONE FUROATE
  7. MIRALAX [Concomitant]
     Active Substance: POLYETHYLENE GLYCOL 3350
  8. PREDNISONE. [Concomitant]
     Active Substance: PREDNISONE
  9. SIMEPREVIR [Suspect]
     Active Substance: SIMEPREVIR
     Indication: HEPATITIS C
     Route: 048
     Dates: start: 20141001
  10. DILTIAZEM [Concomitant]
     Active Substance: DILTIAZEM
  11. LASIX [Concomitant]
     Active Substance: FUROSEMIDE
  12. LOVAZA [Concomitant]
     Active Substance: OMEGA-3-ACID ETHYL ESTERS
  13. ANUSOL [Concomitant]
  14. SOVALDI [Suspect]
     Active Substance: SOFOSBUVIR
     Indication: HEPATITIS C
     Route: 048
     Dates: start: 20141001
  15. ALBUTEROL. [Concomitant]
     Active Substance: ALBUTEROL
  16. AMLODIPINE [Concomitant]
     Active Substance: AMLODIPINE BESYLATE
  17. VITAMIN D [Concomitant]
     Active Substance: CHOLECALCIFEROL
  18. PROTONIX [Concomitant]
     Active Substance: PANTOPRAZOLE SODIUM
  19. ALLOPURINOL. [Concomitant]
     Active Substance: ALLOPURINOL
  20. ASPIRIN. [Concomitant]
     Active Substance: ASPIRIN

REACTIONS (5)
  - Drug level increased [None]
  - Arthritis [None]
  - Toxicity to various agents [None]
  - Acute kidney injury [None]
  - Drug interaction [None]

NARRATIVE: CASE EVENT DATE: 20141017
